FAERS Safety Report 8805887 (Version 1)
Quarter: 2012Q4

REPORT INFORMATION
  Report Type: Spontaneous
  Country: US (occurrence: None)
  Receive Date: 20120918
  Receipt Date: 20120918
  Transmission Date: 20130627
  Serious: Yes (Hospitalization)
  Sender: FDA-Public Use
  Company Number: DKLU1084382

PATIENT
  Age: 13 Month
  Sex: Female

DRUGS (3)
  1. SABRIL [Suspect]
     Indication: INFANTILE SPASMS
     Dosage: 500 mg milligram(s), 2 in 1 D, Oral
     Route: 048
     Dates: start: 20100305
  2. SABRIL [Suspect]
     Indication: EPILEPSY
     Dosage: 500 mg milligram(s), 2 in 1 D, Oral
     Route: 048
     Dates: start: 20100305
  3. DEPAKOTE [Concomitant]

REACTIONS (5)
  - Nausea [None]
  - Vomiting [None]
  - Insomnia [None]
  - Tremor [None]
  - Eye movement disorder [None]
